FAERS Safety Report 9432997 (Version 1)
Quarter: 2013Q3

REPORT INFORMATION
  Report Type: Spontaneous
  Country: US (occurrence: US)
  Receive Date: 20130731
  Receipt Date: 20130731
  Transmission Date: 20140515
  Serious: No
  Sender: FDA-Public Use
  Company Number: US-BAYER-2013-091941

PATIENT
  Age: 48 Year
  Sex: Male
  Weight: 86.17 kg

DRUGS (2)
  1. BAYER GENUINE ASPIRIN ORIGINAL STRENGTH [Suspect]
     Indication: BACK PAIN
     Dosage: 4 DF, QD
     Route: 048
     Dates: start: 2009
  2. ALEVE CAPLET [Suspect]
     Indication: BACK PAIN
     Dosage: 2 DF, ONCE
     Route: 048
     Dates: start: 201307, end: 201307

REACTIONS (2)
  - Incorrect drug administration duration [None]
  - Drug ineffective [None]
